FAERS Safety Report 17185844 (Version 1)
Quarter: 2019Q4

REPORT INFORMATION
  Report Type: Report from Study
  Country: None (occurrence: US)
  Receive Date: 20191220
  Receipt Date: 20191220
  Transmission Date: 20200122
  Serious: Yes (Other)
  Sender: FDA-Public Use
  Company Number: US-ABBVIE-19K-163-2929587-00

PATIENT
  Age: 38 Year
  Sex: Female

DRUGS (1)
  1. ORILISSA [Suspect]
     Active Substance: ELAGOLIX SODIUM
     Indication: PRODUCT USED FOR UNKNOWN INDICATION
     Route: 048
     Dates: start: 20190827, end: 201911

REACTIONS (13)
  - Endotracheal intubation complication [Unknown]
  - Endometrial thickening [Recovering/Resolving]
  - Hormone level abnormal [Unknown]
  - Abdominal pain lower [Unknown]
  - Mood swings [Not Recovered/Not Resolved]
  - Vaginal haemorrhage [Recovering/Resolving]
  - Apnoea [Unknown]
  - Acne [Not Recovered/Not Resolved]
  - Headache [Not Recovered/Not Resolved]
  - Hot flush [Not Recovered/Not Resolved]
  - Aphasia [Recovered/Resolved]
  - Vaginal haemorrhage [Recovered/Resolved]
  - Nausea [Recovered/Resolved]

NARRATIVE: CASE EVENT DATE: 2019
